FAERS Safety Report 7335212-0 (Version None)
Quarter: 2011Q1

REPORT INFORMATION
  Report Type: 
  Country: None (occurrence: None)
  Receive Date: 20110307
  Receipt Date: 20110302
  Transmission Date: 20110831
  Serious: Yes (Other)
  Sender: FDA-Public Use
  Company Number: US-PFIZER INC-2010175734

PATIENT
  Sex: Male

DRUGS (8)
  1. HYDROCHLOROTHIAZIDE [Concomitant]
     Indication: HYPERTENSION
     Dosage: UNK
     Dates: start: 20060101
  2. CLONAZEPAM [Concomitant]
     Indication: STRESS
  3. CHANTIX [Suspect]
     Indication: SMOKING CESSATION THERAPY
     Dosage: 0.5 MG AND 1 MG, UNK
     Dates: start: 20071016, end: 20080101
  4. CLONAZEPAM [Concomitant]
     Indication: ANXIETY
  5. LISINOPRIL [Concomitant]
     Indication: HYPERTENSION
     Dosage: UNK
     Dates: start: 20060101
  6. LIPITOR [Concomitant]
     Indication: ILL-DEFINED DISORDER
     Dosage: UNK
     Dates: start: 20060101
  7. TOPROL-XL [Concomitant]
     Indication: HYPERTENSION
     Dosage: UNK
     Dates: start: 20060101
  8. CLONAZEPAM [Concomitant]
     Indication: FEELING OF RELAXATION
     Dosage: UNK
     Dates: start: 20010101

REACTIONS (7)
  - SUICIDAL IDEATION [None]
  - DISORIENTATION [None]
  - LOSS OF CONSCIOUSNESS [None]
  - DEPRESSION [None]
  - MENTAL DISORDER [None]
  - ANXIETY [None]
  - NIGHTMARE [None]
